FAERS Safety Report 4528667-8 (Version None)
Quarter: 2004Q4

REPORT INFORMATION
  Report Type: 
  Country: None (occurrence: None)
  Receive Date: 20041216
  Receipt Date: 20041209
  Transmission Date: 20050328
  Serious: Yes (Death)
  Sender: FDA-Public Use
  Company Number: US-JNJFOC-20040805025

PATIENT
  Age: 41 Year
  Sex: Female

DRUGS (1)
  1. DURAGESIC [Suspect]
     Indication: DRUG USE FOR UNKNOWN INDICATION
     Route: 062

REACTIONS (4)
  - ACCIDENTAL OVERDOSE [None]
  - DEATH [None]
  - MEDICATION ERROR [None]
  - OVERDOSE [None]
